FAERS Safety Report 9427889 (Version 1)
Quarter: 2013Q3

REPORT INFORMATION
  Report Type: Report from Study
  Country: US (occurrence: US)
  Receive Date: 20130730
  Receipt Date: 20130730
  Transmission Date: 20140515
  Serious: No
  Sender: FDA-Public Use
  Company Number: US-ABBOTT-12P-163-0961732-00

PATIENT
  Age: 56 Year
  Sex: Female

DRUGS (4)
  1. NIASPAN (COATED) 500MG [Suspect]
     Indication: PRODUCT USED FOR UNKNOWN INDICATION
     Dosage: 500 MG AT BEDTIME
     Route: 048
     Dates: start: 20120725, end: 20120729
  2. ASA [Concomitant]
     Indication: PRODUCT USED FOR UNKNOWN INDICATION
     Dosage: 81 MG AT BEDTIME
     Route: 048
  3. BIOTIN OTC SUPPLEMENT [Concomitant]
     Indication: PRODUCT USED FOR UNKNOWN INDICATION
  4. OTHER UNKNOWN MEDICATIONS [Concomitant]
     Indication: PRODUCT USED FOR UNKNOWN INDICATION

REACTIONS (4)
  - Skin burning sensation [Recovered/Resolved]
  - Generalised erythema [Recovered/Resolved]
  - Urticaria [Recovered/Resolved]
  - Local swelling [Recovered/Resolved]
